FAERS Safety Report 14920378 (Version 4)
Quarter: 2018Q3

REPORT INFORMATION
  Report Type: Spontaneous
  Country: US (occurrence: US)
  Receive Date: 20180521
  Receipt Date: 20180814
  Transmission Date: 20181010
  Serious: Yes (Hospitalization, Other)
  Sender: FDA-Public Use
  Company Number: US-PFIZER INC-2018203154

PATIENT
  Age: 81 Year
  Sex: Female
  Weight: 54.88 kg

DRUGS (10)
  1. ASPIRIN. [Concomitant]
     Active Substance: ASPIRIN
     Indication: CARDIAC DISORDER
     Dosage: 81 MG, 1X/DAY(81 MG TABLET ONCE A DAY BY MOUTH)
     Route: 048
  2. TIKOSYN [Suspect]
     Active Substance: DOFETILIDE
     Indication: CARDIAC DISORDER
     Dosage: 500 UG, DAILY
     Route: 048
  3. TIKOSYN [Suspect]
     Active Substance: DOFETILIDE
     Indication: HEART DISEASE CONGENITAL
     Dosage: 500 UG, 2X/DAY (500 MCG TABLET TWICE A DAY BY MOUTH)
     Route: 048
     Dates: start: 1973
  4. ELIQUIS [Concomitant]
     Active Substance: APIXABAN
     Indication: ATRIAL FIBRILLATION
  5. TYLENOL [Concomitant]
     Active Substance: ACETAMINOPHEN
     Dosage: UNK, AS NEEDED
  6. ELIQUIS [Concomitant]
     Active Substance: APIXABAN
     Indication: CARDIAC DISORDER
     Dosage: 2.5 MG, 2X/DAY
  7. BABY ASPIRIN [Concomitant]
     Active Substance: ASPIRIN
     Indication: PROPHYLAXIS
     Dosage: UNK, 1X/DAY (LOW DOSE TABLET)
     Route: 048
  8. TIKOSYN [Suspect]
     Active Substance: DOFETILIDE
     Indication: ATRIAL FIBRILLATION
     Dosage: 500 UG, 2X/DAY
     Route: 048
     Dates: start: 201504
  9. ASA [Concomitant]
     Active Substance: ASPIRIN
     Dosage: UNK
  10. TYLENOL [Concomitant]
     Active Substance: ACETAMINOPHEN
     Indication: PAIN
     Dosage: 500 MG, 1X/DAY (500 MG TABLET EXTRA STRENGTH ONCE A DAY BY MOUTH)
     Route: 048

REACTIONS (9)
  - Loss of consciousness [Recovered/Resolved]
  - Hypertension [Recovering/Resolving]
  - Disturbance in attention [Not Recovered/Not Resolved]
  - Syncope [Recovered/Resolved]
  - Malaise [Unknown]
  - Nervousness [Not Recovered/Not Resolved]
  - Road traffic accident [Recovered/Resolved]
  - Tachyarrhythmia [Unknown]
  - Tremor [Not Recovered/Not Resolved]

NARRATIVE: CASE EVENT DATE: 201504
